FAERS Safety Report 25586744 (Version 1)
Quarter: 2025Q3

REPORT INFORMATION
  Report Type: Spontaneous
  Country: US (occurrence: None)
  Receive Date: 20250720
  Receipt Date: 20250720
  Transmission Date: 20251020
  Serious: Yes (Other)
  Sender: FDA-CTU
  Company Number: None

PATIENT
  Age: 22 Year
  Sex: Female

DRUGS (3)
  1. LAMICTAL [Suspect]
     Active Substance: LAMOTRIGINE
     Indication: Bipolar disorder
  2. SEROQUEL XR [Suspect]
     Active Substance: QUETIAPINE FUMARATE
  3. CANNABIS SATIVA SUBSP. INDICA TOP [Suspect]
     Active Substance: CANNABIS SATIVA SUBSP. INDICA TOP

REACTIONS (7)
  - Seizure [None]
  - Myoclonic epilepsy [None]
  - Petit mal epilepsy [None]
  - Tic [None]
  - Asterixis [None]
  - Alcohol use [None]
  - Substance use [None]

NARRATIVE: CASE EVENT DATE: 20231111
